FAERS Safety Report 9779133 (Version 1)
Quarter: 2013Q4

REPORT INFORMATION
  Report Type: Other
  Country: IT (occurrence: IT)
  Receive Date: 20131223
  Receipt Date: 20131223
  Transmission Date: 20140711
  Serious: Yes (Other)
  Sender: FDA-Public Use
  Company Number: IT-US-EMD SERONO, INC.-7258245

PATIENT
  Sex: Female

DRUGS (4)
  1. L-THYROXINE [Suspect]
     Indication: HYPOTHYROIDISM
  2. SOMATROPIN [Suspect]
     Indication: GROWTH HORMONE DEFICIENCY
  3. CALCITRIOL [Concomitant]
     Indication: PSEUDOHYPOPARATHYROIDISM
  4. CALCIUM [Concomitant]
     Indication: PSEUDOHYPOPARATHYROIDISM

REACTIONS (1)
  - Congenital osteodystrophy [Unknown]
